FAERS Safety Report 11322684 (Version 2)
Quarter: 2015Q4

REPORT INFORMATION
  Report Type: Report from Study
  Country: US (occurrence: US)
  Receive Date: 20150730
  Receipt Date: 20151013
  Transmission Date: 20160304
  Serious: Yes (Other)
  Sender: FDA-Public Use
  Company Number: US-AMGEN-USASL2015075893

PATIENT
  Age: 63 Year
  Sex: Male

DRUGS (2)
  1. ENBREL [Suspect]
     Active Substance: ETANERCEPT
     Indication: PSORIASIS
  2. ENBREL [Suspect]
     Active Substance: ETANERCEPT
     Indication: PSORIASIS
     Dosage: UNK UNK, UNK
     Route: 065
     Dates: start: 20150615, end: 2015

REACTIONS (5)
  - Radiation injury [Unknown]
  - Radiotherapy [Unknown]
  - Psoriasis [Unknown]
  - Pruritus [Unknown]
  - Prostate cancer [Unknown]

NARRATIVE: CASE EVENT DATE: 2015
